FAERS Safety Report 13549395 (Version 1)
Quarter: 2017Q2

REPORT INFORMATION
  Report Type: Spontaneous
  Country: FR (occurrence: FR)
  Receive Date: 20170516
  Receipt Date: 20170516
  Transmission Date: 20170830
  Serious: Yes (Other)
  Sender: FDA-Public Use
  Company Number: FR-BEH-2017080379

PATIENT
  Age: 34 Year
  Sex: Female

DRUGS (2)
  1. RHOPHYLAC [Suspect]
     Active Substance: HUMAN RHO(D) IMMUNE GLOBULIN
     Indication: ABORTION SPONTANEOUS
  2. RHOPHYLAC [Suspect]
     Active Substance: HUMAN RHO(D) IMMUNE GLOBULIN
     Indication: PROPHYLAXIS
     Dosage: UNK
     Route: 042
     Dates: start: 20160125, end: 20160125

REACTIONS (9)
  - Thrombocytopenia [Recovered/Resolved]
  - Metrorrhagia [Unknown]
  - Anaemia macrocytic [Unknown]
  - Petechiae [Recovered/Resolved]
  - Reticulocytosis [Unknown]
  - Arthralgia [Recovered/Resolved]
  - Skin lesion [Recovered/Resolved]
  - Asthenia [Unknown]
  - Methaemoglobinaemia [Unknown]

NARRATIVE: CASE EVENT DATE: 20160130
